FAERS Safety Report 22692955 (Version 2)
Quarter: 2024Q3

REPORT INFORMATION
  Report Type: Spontaneous
  Country: US (occurrence: US)
  Receive Date: 20230711
  Receipt Date: 20240722
  Transmission Date: 20241017
  Serious: No
  Sender: ASTELLAS
  Company Number: US-ASTELLAS-2023US015338

PATIENT
  Age: 82 Year
  Sex: Female

DRUGS (2)
  1. MYRBETRIQ [Suspect]
     Active Substance: MIRABEGRON
     Indication: Pollakiuria
     Route: 065
     Dates: start: 20230511
  2. MYRBETRIQ [Suspect]
     Active Substance: MIRABEGRON
     Indication: Incontinence

REACTIONS (2)
  - Fluid retention [Unknown]
  - Headache [Unknown]
